FAERS Safety Report 20207690 (Version 1)
Quarter: 2021Q4

REPORT INFORMATION
  Report Type: Spontaneous
  Country: US (occurrence: None)
  Receive Date: 20211220
  Receipt Date: 20211220
  Transmission Date: 20220303
  Serious: Yes (Other)
  Sender: FDA-Public Use
  Company Number: None

PATIENT
  Age: 56 Year
  Sex: Female
  Weight: 73.8 kg

DRUGS (1)
  1. GABAPENTIN [Suspect]
     Active Substance: GABAPENTIN
     Indication: Neuralgia
     Dosage: FREQUENCY : 3 TIMES A DAY;?
     Route: 048
     Dates: start: 20210915, end: 20210918

REACTIONS (12)
  - Pain [None]
  - Spinal pain [None]
  - Urethral pain [None]
  - Proctalgia [None]
  - Pain in extremity [None]
  - Pain in extremity [None]
  - Pain in extremity [None]
  - Urinary retention [None]
  - Dizziness [None]
  - Ataxia [None]
  - Amblyopia [None]
  - Bladder pain [None]

NARRATIVE: CASE EVENT DATE: 20210915
